FAERS Safety Report 6157864-3 (Version None)
Quarter: 2009Q2

REPORT INFORMATION
  Report Type: 
  Country: None (occurrence: None)
  Receive Date: 20090414
  Receipt Date: 20090401
  Transmission Date: 20091009
  Serious: Yes (Hospitalization)
  Sender: FDA-Public Use
  Company Number: 230154K09BRA

PATIENT
  Age: 39 Year
  Sex: Male

DRUGS (1)
  1. REBIF [Suspect]
     Dosage: 44 MCG, 2 IN 1 WEEKS
     Dates: start: 20071203, end: 20090101

REACTIONS (3)
  - CELLULITIS [None]
  - MULTIPLE SCLEROSIS RELAPSE [None]
  - TREATMENT NONCOMPLIANCE [None]
